FAERS Safety Report 5522031-0 (Version None)
Quarter: 2007Q4

REPORT INFORMATION
  Report Type: 
  Country: None (occurrence: None)
  Receive Date: 20071115
  Receipt Date: 20071106
  Transmission Date: 20080405
  Serious: Yes (Hospitalization)
  Sender: FDA-Public Use
  Company Number: 2007-04965

PATIENT
  Age: 38 Year
  Sex: Female

DRUGS (8)
  1. FIORICET [Suspect]
     Indication: OSTEOARTHRITIS
     Dosage: 650 MG, DAILY, ORAL, 500 MG, BID X 2-3 YEARS, ORAL
     Route: 048
  2. NAPROXEN [Suspect]
     Indication: OSTEOARTHRITIS
     Dosage: 325 MG, DAILY X 2-3 YEARS, ORAL
     Route: 048
  3. DIPHENHYDRAMINE HYDROCHLORIDE [Concomitant]
  4. PMS-CONJUGATED ESTROGENS (ESTROGENS CONJUGATED) [Concomitant]
  5. METOCLOPRAMIDE [Concomitant]
  6. FENOFIBRATE [Concomitant]
  7. VENLAFAXINE HCL [Concomitant]
  8. PANTOPRAZOLE SODIUM [Concomitant]

REACTIONS (5)
  - DRUG INTERACTION POTENTIATION [None]
  - HYDRONEPHROSIS [None]
  - NEPHROPATHY TOXIC [None]
  - RENAL IMPAIRMENT [None]
  - RENAL PAPILLARY NECROSIS [None]
